FAERS Safety Report 6200690-7 (Version None)
Quarter: 2009Q2

REPORT INFORMATION
  Report Type: 
  Country: None (occurrence: None)
  Receive Date: 20090522
  Receipt Date: 20090519
  Transmission Date: 20091009
  Serious: Yes (Other)
  Sender: FDA-Public Use
  Company Number: US-MERCK-0812USA05354

PATIENT
  Age: 45 Month
  Sex: Female
  Weight: 21 kg

DRUGS (2)
  1. SINGULAIR [Suspect]
     Route: 048
     Dates: start: 20081023, end: 20081108
  2. ZITHROMAX [Suspect]
     Route: 065
     Dates: start: 20081023

REACTIONS (4)
  - ANAPHYLACTIC SHOCK [None]
  - URTICARIA [None]
  - VIRAL UPPER RESPIRATORY TRACT INFECTION [None]
  - VULVOVAGINITIS [None]
